FAERS Safety Report 10273162 (Version 1)
Quarter: 2014Q2

REPORT INFORMATION
  Report Type: Spontaneous
  Country: GB (occurrence: None)
  Receive Date: 20140630
  Receipt Date: 20140630
  Transmission Date: 20141212
  Serious: Yes (Disabling)
  Sender: FDA-Public Use
  Company Number: AUR-APL-2014-06797

PATIENT
  Age: 68 Year
  Sex: Female

DRUGS (6)
  1. BISOPROLOL [Suspect]
     Indication: CARDIAC FAILURE
     Dates: start: 20140425, end: 20140609
  2. ASPIRIN (ACETYLSALICYLIC ACID) [Concomitant]
  3. ATORVASTATIN (ATORVASTATIN) [Concomitant]
  4. CANDESARTAN (CANDESARTAN) [Concomitant]
  5. FUROSEMIDE (FUROSEMIDE) [Concomitant]
  6. SALBUTAMOL (SALBUTAMOL) [Concomitant]

REACTIONS (2)
  - Dyspnoea [None]
  - Wheezing [None]
